FAERS Safety Report 17191225 (Version 2)
Quarter: 2020Q1

REPORT INFORMATION
  Report Type: Spontaneous
  Country: US (occurrence: US)
  Receive Date: 20191223
  Receipt Date: 20200217
  Transmission Date: 20200409
  Serious: Yes (Hospitalization, Other)
  Sender: FDA-Public Use
  Company Number: US-SEBELA IRELAND LIMITED-2019SEB00249

PATIENT
  Age: 58 Year
  Sex: Female
  Weight: 97.05 kg

DRUGS (8)
  1. IMURAN [Suspect]
     Active Substance: AZATHIOPRINE
     Dosage: UNK, 1X/DAY
     Route: 048
  2. ZOSYN [Suspect]
     Active Substance: PIPERACILLIN SODIUM\TAZOBACTAM SODIUM
     Dosage: UNK
     Dates: start: 201101
  3. CALCIUM [Concomitant]
     Active Substance: CALCIUM
  4. IMURAN [Suspect]
     Active Substance: AZATHIOPRINE
     Indication: COLITIS ULCERATIVE
     Dosage: UNK, 1X/DAY
     Route: 048
     Dates: start: 2008
  5. VITAMIN D [Concomitant]
     Active Substance: VITAMIN D NOS
  6. IMURAN [Suspect]
     Active Substance: AZATHIOPRINE
     Dosage: UNK, 1X/DAY
     Route: 048
     Dates: end: 201101
  7. VITAMIN C [Concomitant]
     Active Substance: ASCORBIC ACID
  8. VITAMIN E [Concomitant]
     Active Substance: .ALPHA.-TOCOPHEROL

REACTIONS (14)
  - Gallbladder disorder [Unknown]
  - Folate deficiency [Unknown]
  - Proctitis ulcerative [Unknown]
  - Hepatic cyst [Unknown]
  - Pancytopenia [Unknown]
  - White blood cell count decreased [Recovered/Resolved]
  - Off label use [Recovered/Resolved]
  - Cytomegalovirus colitis [Unknown]
  - Feeling abnormal [Unknown]
  - Bronchitis [Unknown]
  - Pyrexia [Unknown]
  - Influenza [Unknown]
  - Drug hypersensitivity [Not Recovered/Not Resolved]
  - Zinc deficiency [Unknown]

NARRATIVE: CASE EVENT DATE: 2008
